FAERS Safety Report 4651965-4 (Version None)
Quarter: 2005Q2

REPORT INFORMATION
  Report Type: 
  Country: None (occurrence: None)
  Receive Date: 20050502
  Receipt Date: 20050502
  Transmission Date: 20051028
  Serious: Yes (Hospitalization)
  Sender: FDA-Public Use
  Company Number: None

PATIENT
  Age: 71 Year
  Sex: Male
  Weight: 77.0208 kg

DRUGS (17)
  1. PROCRIT [Suspect]
     Indication: ANAEMIA
     Dosage: 60,000 IU SQ WEEKLY
     Route: 058
     Dates: start: 20050404
  2. SAMARIUM  SM-153 (QUADRAMET) BY CYTOGEN [Suspect]
     Indication: BONE PAIN
     Dosage: SM-153 76.5 MCI  IV
     Route: 042
     Dates: start: 20050330
  3. SAMARIUM  SM-153 (QUADRAMET) BY CYTOGEN [Suspect]
     Indication: METASTASES TO BONE
     Dosage: SM-153 76.5 MCI  IV
     Route: 042
     Dates: start: 20050330
  4. HYDROCODONE BITARTRATE [Concomitant]
  5. KYTRIL [Concomitant]
  6. POLYETH. GLYCOL [Concomitant]
  7. ULTRACET [Concomitant]
  8. ACETAMINOPHEN [Concomitant]
  9. INSULIN [Concomitant]
  10. MULTI-VITAMINS [Concomitant]
  11. DEXAMETHASONE [Concomitant]
  12. BENADRYL [Concomitant]
  13. NEUPOGEN [Concomitant]
  14. LORAZEPAM [Concomitant]
  15. ONDANSETRON [Concomitant]
  16. TOBRAMYCIN [Concomitant]
  17. VANCOMYCIN [Concomitant]

REACTIONS (8)
  - ANAEMIA [None]
  - BONE PAIN [None]
  - CARDIO-RESPIRATORY ARREST [None]
  - CONSTIPATION [None]
  - METASTASES TO BONE [None]
  - PYELONEPHRITIS [None]
  - SEPSIS [None]
  - THROMBOCYTOPENIA [None]
